FAERS Safety Report 4799840-9 (Version None)
Quarter: 2005Q4

REPORT INFORMATION
  Report Type: 
  Country: None (occurrence: None)
  Receive Date: 20051013
  Receipt Date: 20050927
  Transmission Date: 20060501
  Serious: Yes (Hospitalization)
  Sender: FDA-Public Use
  Company Number: FR_050907073

PATIENT
  Age: 78 Year
  Sex: Female
  Weight: 71 kg

DRUGS (6)
  1. ALIMTA [Suspect]
     Indication: LUNG NEOPLASM MALIGNANT
     Dates: start: 20050729, end: 20050729
  2. LAMALINE [Concomitant]
  3. ALLOPURINOL [Concomitant]
  4. INNOHEP [Concomitant]
  5. CIPROFLOXACIN HCL [Concomitant]
  6. OMEPRAZOLE [Concomitant]

REACTIONS (2)
  - LEUKOPENIA [None]
  - THROMBOCYTOPENIA [None]
